FAERS Safety Report 4299567-6 (Version None)
Quarter: 2004Q1

REPORT INFORMATION
  Report Type: 
  Country: None (occurrence: None)
  Receive Date: 20040217
  Receipt Date: 20040212
  Transmission Date: 20041129
  Serious: No
  Sender: FDA-Public Use
  Company Number: 2003CG01833

PATIENT
  Age: 71 Year
  Sex: Female
  Weight: 65 kg

DRUGS (4)
  1. XYLOCAINE W/ EPINEPHRINE [Suspect]
     Indication: LOCAL ANAESTHESIA
     Dosage: 1 ML ONCE SQ
     Route: 058
     Dates: start: 20030101, end: 20030101
  2. TERALITHE [Concomitant]
  3. ACUITEL [Concomitant]
  4. LEVOTHYROXINE SODIUM [Concomitant]

REACTIONS (3)
  - DIZZINESS [None]
  - HEADACHE [None]
  - HYPERTENSIVE CRISIS [None]
